FAERS Safety Report 14999716 (Version 3)
Quarter: 2018Q3

REPORT INFORMATION
  Report Type: Spontaneous
  Country: AU (occurrence: AU)
  Receive Date: 20180612
  Receipt Date: 20180718
  Transmission Date: 20181010
  Serious: Yes (Other)
  Sender: FDA-Public Use
  Company Number: AU-VERICEL CORPORATION-VCEL-2018-000310

PATIENT

DRUGS (1)
  1. MACI [Suspect]
     Active Substance: AUTOLOGOUS CULTURED CHONDROCYTES\SUS SCROFA COLLAGEN
     Indication: CARTILAGE INJURY
     Dosage: UNK
     Dates: start: 2016

REACTIONS (2)
  - Graft delamination [Unknown]
  - Graft loss [Unknown]
